FAERS Safety Report 6403142-4 (Version None)
Quarter: 2009Q4

REPORT INFORMATION
  Report Type: 
  Country: None (occurrence: None)
  Receive Date: 20091016
  Receipt Date: 20091007
  Transmission Date: 20100525
  Serious: Yes (Disabling)
  Sender: FDA-Public Use
  Company Number: GB-ASTRAZENECA-2009SE18614

PATIENT
  Age: 35 Year
  Sex: Female

DRUGS (4)
  1. QUETIAPINE [Suspect]
     Indication: PSYCHOTIC DISORDER
     Route: 048
     Dates: start: 20090523, end: 20090621
  2. AMITRIPTYLINE [Concomitant]
  3. PEGYLATED INTERFERON ALFA-2A [Concomitant]
  4. RIBAVIRIN [Concomitant]

REACTIONS (3)
  - ALTERED VISUAL DEPTH PERCEPTION [None]
  - DIPLOPIA [None]
  - VISION BLURRED [None]
